APPROVED DRUG PRODUCT: THYREL TRH
Active Ingredient: PROTIRELIN
Strength: 0.5MG/ML
Dosage Form/Route: INJECTABLE;INJECTION
Application: N018087 | Product #001
Applicant: FERRING PHARMACEUTICALS INC
Approved: Approved Prior to Jan 1, 1982 | RLD: No | RS: No | Type: DISCN